FAERS Safety Report 16961550 (Version 2)
Quarter: 2019Q4

REPORT INFORMATION
  Report Type: Spontaneous
  Country: US (occurrence: US)
  Receive Date: 20191025
  Receipt Date: 20191226
  Transmission Date: 20200122
  Serious: Yes (Death, Other)
  Sender: FDA-Public Use
  Company Number: US-PFIZER INC-2019461313

PATIENT
  Age: 72 Year
  Sex: Female
  Weight: 70 kg

DRUGS (9)
  1. AROMASIN [Suspect]
     Active Substance: EXEMESTANE
     Indication: BREAST CANCER FEMALE
     Dosage: 25 MG, UNK
  2. CLONAZEPAM. [Concomitant]
     Active Substance: CLONAZEPAM
     Dosage: 0.5 DF, 1X/DAY [NIGHT/ 0.5 TABLETS]
  3. TRAZODON [Concomitant]
     Active Substance: TRAZODONE HYDROCHLORIDE
     Dosage: 1 DF, 1X/DAY [NIGHT/DOSE: 1 TABLET]
  4. SERTRALINE [Concomitant]
     Active Substance: SERTRALINE HYDROCHLORIDE
     Dosage: 1 DF, 1X/DAY [LATER A.M./DOSE: 1 TABLET]
  5. OXYCODONE [Concomitant]
     Active Substance: OXYCODONE
     Dosage: 0.5 DF, 1X/DAY [NIGHT/DOSE: 0.5 TABLETS]
  6. AROMASIN [Suspect]
     Active Substance: EXEMESTANE
     Indication: METASTATIC NEOPLASM
     Dosage: 10 MG, 1X/DAY
     Dates: start: 201812, end: 201907
  7. AFINITOR [Concomitant]
     Active Substance: EVEROLIMUS
     Dosage: 1 DF, 1X/DAY [DINNER/DOSE: 1 TABLET ]
  8. ROPINIROLE. [Concomitant]
     Active Substance: ROPINIROLE
     Dosage: 2 DF, 1X/DAY [NIGHT/DOSE: 2 TABLETS]
  9. ELIQUIS [Concomitant]
     Active Substance: APIXABAN
     Dosage: 2 DF, DAILY [NIGHT AND  MORNING/ DOSE: 1 TABLET]

REACTIONS (1)
  - Death [Fatal]

NARRATIVE: CASE EVENT DATE: 20191110
